FAERS Safety Report 8583794-3 (Version None)
Quarter: 2012Q3

REPORT INFORMATION
  Report Type: 
  Country: None (occurrence: None)
  Receive Date: 20120810
  Receipt Date: 20120730
  Transmission Date: 20120928
  Serious: Yes (Congenital Anomaly)
  Sender: FDA-Public Use
  Company Number: US-009507513-1204USA03303B1

PATIENT

DRUGS (5)
  1. TRUVADA [Suspect]
     Dosage: 1 DF, UNK
     Route: 064
     Dates: start: 20110713, end: 20111027
  2. COMBIVIR [Suspect]
     Dosage: 2 DF, UNK
     Route: 064
     Dates: start: 20111121
  3. NORVIR [Suspect]
     Dosage: 100 MG, QD
     Route: 064
     Dates: start: 20110713, end: 20111027
  4. REYATAZ [Suspect]
     Dosage: 300 MG, QD
     Route: 064
     Dates: start: 20110713, end: 20111027
  5. ISENTRESS [Suspect]
     Dosage: 800 MG, QD
     Route: 064
     Dates: start: 20111121

REACTIONS (5)
  - VERTICAL TALUS [None]
  - FOETAL EXPOSURE DURING PREGNANCY [None]
  - SPINA BIFIDA [None]
  - ARNOLD-CHIARI MALFORMATION [None]
  - FOETAL CHROMOSOME ABNORMALITY [None]
